FAERS Safety Report 5726960-4 (Version None)
Quarter: 2008Q2

REPORT INFORMATION
  Report Type: 
  Country: None (occurrence: None)
  Receive Date: 20080501
  Receipt Date: 20070329
  Transmission Date: 20081010
  Serious: Yes (Other)
  Sender: FDA-Public Use
  Company Number: PHEH2007US03701

PATIENT
  Sex: Female
  Weight: 82.1 kg

DRUGS (6)
  1. DIOVAN HCT [Suspect]
     Indication: HYPERTENSION
     Dosage: 80MG VAL/12.5MG HCT, QD, ORAL
     Route: 048
     Dates: start: 20070320
  2. TOPROL-XL [Concomitant]
  3. VITAMIN B12 [Concomitant]
  4. FOLIC ACID [Concomitant]
  5. CALTRATE (CALCIUM CARBONATE) [Concomitant]
  6. ASPIRIN [Concomitant]

REACTIONS (2)
  - PRESYNCOPE [None]
  - THERAPY RESPONDER [None]
